FAERS Safety Report 4318169-6 (Version None)
Quarter: 2004Q1

REPORT INFORMATION
  Report Type: 
  Country: None (occurrence: None)
  Receive Date: 20040317
  Receipt Date: 20040315
  Transmission Date: 20041129
  Serious: Yes (Other)
  Sender: FDA-Public Use
  Company Number: GB-ROCHE-361729

PATIENT
  Age: 50 Year
  Sex: Female

DRUGS (4)
  1. CEFTRIAXONE [Suspect]
     Route: 042
     Dates: start: 20040214, end: 20040226
  2. FUCIDINE CAP [Concomitant]
     Route: 048
     Dates: start: 20040212
  3. AMITRIPTYLINE HCL [Concomitant]
     Route: 048
     Dates: start: 20040127
  4. MORPHINE [Concomitant]
     Route: 048
     Dates: start: 20040127

REACTIONS (5)
  - ABDOMINAL PAIN UPPER [None]
  - AGGRESSION [None]
  - LIVER FUNCTION TEST ABNORMAL [None]
  - RASH [None]
  - SUICIDAL IDEATION [None]
